FAERS Safety Report 6286811-9 (Version None)
Quarter: 2009Q3

REPORT INFORMATION
  Report Type: 
  Country: None (occurrence: None)
  Receive Date: 20090727
  Receipt Date: 20090727
  Transmission Date: 20100115
  Serious: Yes (Other)
  Sender: FDA-Public Use
  Company Number: None

PATIENT
  Age: 73 Year
  Sex: Female
  Weight: 67.586 kg

DRUGS (3)
  1. PARCOPA [Suspect]
     Indication: PARKINSON'S DISEASE
     Dosage: ONCE TABLET 10X DAILY
     Dates: start: 20070401, end: 20090501
  2. MIRAPEX [Concomitant]
  3. SELEGILINE ODT (ZELAPAR) [Concomitant]

REACTIONS (4)
  - CONDITION AGGRAVATED [None]
  - CYSTITIS INTERSTITIAL [None]
  - PRODUCT SUBSTITUTION ISSUE [None]
  - REACTION TO DRUG EXCIPIENTS [None]
